FAERS Safety Report 18600536 (Version 1)
Quarter: 2020Q4

REPORT INFORMATION
  Report Type: Spontaneous
  Country: US (occurrence: US)
  Receive Date: 20201210
  Receipt Date: 20201210
  Transmission Date: 20210114
  Serious: Yes (Death, Hospitalization)
  Sender: FDA-Public Use
  Company Number: None

PATIENT
  Age: 79 Year
  Sex: Male
  Weight: 103.2 kg

DRUGS (9)
  1. POTASSIUM 20 MEQ DAILY [Concomitant]
  2. RIVAROXABAN 20 MG DAILY [Concomitant]
  3. FUROSEMIDE 80 MG DAILY [Concomitant]
  4. DEXAMETHASONE 6 MG DAILY [Concomitant]
     Dates: start: 20201123, end: 20201128
  5. ZANTAC 150 MG BID [Concomitant]
  6. ALBUTEROL INHALER [Concomitant]
     Active Substance: ALBUTEROL
  7. FLOMAX 0.4 MG DAILY [Concomitant]
  8. BAMLANIVIMAB. [Suspect]
     Active Substance: BAMLANIVIMAB
     Indication: COVID-19
     Dosage: ?          OTHER FREQUENCY:ONE TIME;?
     Route: 041
     Dates: start: 20201127, end: 20201127
  9. HYDROCHLOROTHIAZIDE 25 MG DAILY [Concomitant]

REACTIONS (6)
  - Loss of consciousness [None]
  - Hypoxia [None]
  - Dyspnoea [None]
  - Fall [None]
  - Haemoptysis [None]
  - Oxygen saturation decreased [None]

NARRATIVE: CASE EVENT DATE: 20201203
